FAERS Safety Report 17446500 (Version 1)
Quarter: 2020Q1

REPORT INFORMATION
  Report Type: Spontaneous
  Country: ES (occurrence: ES)
  Receive Date: 20200221
  Receipt Date: 20200221
  Transmission Date: 20200409
  Serious: Yes (Hospitalization)
  Sender: FDA-Public Use
  Company Number: NVSC2020ES042315

PATIENT
  Age: 55 Year
  Sex: Female
  Weight: 52 kg

DRUGS (7)
  1. RIFAMPICIN [Suspect]
     Active Substance: RIFAMPIN
     Indication: TUBERCULOSIS
     Dosage: 600 MG, QD (300MG 2 COMP DIA)
     Route: 048
     Dates: start: 20180426, end: 20180516
  2. ESPIRONOLACTONA [Concomitant]
     Active Substance: SPIRONOLACTONE
     Indication: ASCITES
     Dosage: 100 MG, QD (100MG AL D?A)
     Route: 048
     Dates: start: 20180418, end: 20180511
  3. CICLOSERINA [Suspect]
     Active Substance: CYCLOSERINE
     Indication: TUBERCULOSIS
     Dosage: 750 MG, QD (750 MG AL D?A)
     Route: 048
     Dates: start: 20180418, end: 20180518
  4. MOXIFLOXACIN. [Suspect]
     Active Substance: MOXIFLOXACIN
     Indication: PRODUCT USED FOR UNKNOWN INDICATION
     Dosage: 800 MG, QD
     Route: 048
     Dates: start: 20180418, end: 20180518
  5. BENADON [Concomitant]
     Active Substance: PYRIDOXINE HYDROCHLORIDE
     Indication: TUBERCULOSIS
     Dosage: 600 MG, QW (300MG LUNES Y JUEVES) (20 TABLETS)
     Route: 048
     Dates: start: 20180425, end: 20180518
  6. AMIKACINA [Suspect]
     Active Substance: AMIKACIN SULFATE
     Indication: TUBERCULOSIS
     Dosage: 1500 MG, QD (1500MG AL D?A)
     Route: 042
     Dates: start: 20180419, end: 20180511
  7. ETHAMBUTOL [Suspect]
     Active Substance: ETHAMBUTOL HYDROCHLORIDE
     Indication: TUBERCULOSIS
     Dosage: 1200 MG, QD  (1200MG AL D?A)
     Route: 048
     Dates: start: 20180418, end: 20180518

REACTIONS (1)
  - Drug reaction with eosinophilia and systemic symptoms [Recovered/Resolved]

NARRATIVE: CASE EVENT DATE: 20180513
